FAERS Safety Report 15878317 (Version 3)
Quarter: 2019Q2

REPORT INFORMATION
  Report Type: Spontaneous
  Country: US (occurrence: US)
  Receive Date: 20190128
  Receipt Date: 20190426
  Transmission Date: 20190711
  Serious: Yes (Other)
  Sender: FDA-Public Use
  Company Number: US-PFIZER INC-2019033009

PATIENT
  Age: 47 Year
  Sex: Female
  Weight: 66 kg

DRUGS (8)
  1. SOMA [Concomitant]
     Active Substance: CARISOPRODOL
     Indication: MUSCLE RELAXANT THERAPY
     Dosage: 350 MG, 3X/DAY
     Route: 048
  2. LYRICA [Suspect]
     Active Substance: PREGABALIN
     Indication: CARPAL TUNNEL SYNDROME
     Dosage: 75 MG, 3X/DAY
     Route: 048
     Dates: start: 201901
  3. GABAPENTIN. [Suspect]
     Active Substance: GABAPENTIN
     Indication: HAND DEFORMITY
  4. GABAPENTIN. [Suspect]
     Active Substance: GABAPENTIN
     Indication: INTERVERTEBRAL DISC PROTRUSION
  5. GABAPENTIN. [Suspect]
     Active Substance: GABAPENTIN
     Indication: BACK DISORDER
  6. LYRICA [Suspect]
     Active Substance: PREGABALIN
     Indication: INTERVERTEBRAL DISC PROTRUSION
     Dosage: 75 MG, THREE TIMES A DAY
     Route: 048
  7. GABAPENTIN. [Suspect]
     Active Substance: GABAPENTIN
     Indication: MUSCULOSKELETAL DISCOMFORT
     Dosage: 300 MG, 3X/DAY
     Route: 048
     Dates: start: 201707, end: 201901
  8. LYRICA [Suspect]
     Active Substance: PREGABALIN
     Indication: PAIN
     Dosage: 75 MG, 2X/DAY, [ONE CAPSULE IN THE MORNING AND ONE CAPSULE AT NIGHT BEFORE BED]
     Route: 048

REACTIONS (2)
  - Drug ineffective for unapproved indication [Unknown]
  - Loss of personal independence in daily activities [Unknown]
